FAERS Safety Report 8379097-2 (Version None)
Quarter: 2012Q1

REPORT INFORMATION
  Report Type: 
  Country: None (occurrence: None)
  Receive Date: 20120323
  Receipt Date: 20110322
  Transmission Date: 20120608
  Serious: Yes (Other)
  Sender: FDA-Public Use
  Company Number: 163-21880-11032825

PATIENT
  Sex: Female
  Weight: 73 kg

DRUGS (2)
  1. REVLIMID [Suspect]
     Indication: MULTIPLE MYELOMA
     Dosage: 10 MG, 1 IN 1 D, PO 5 MG, DAILY FOR 21, PO
     Route: 048
     Dates: start: 20061001
  2. REVLIMID [Suspect]
     Indication: MULTIPLE MYELOMA
     Dosage: 10 MG, 1 IN 1 D, PO 5 MG, DAILY FOR 21, PO
     Route: 048
     Dates: start: 20060901, end: 20060101

REACTIONS (3)
  - RENAL IMPAIRMENT [None]
  - INFECTION [None]
  - BLOOD GLUCOSE INCREASED [None]
